FAERS Safety Report 8977430 (Version 2)
Quarter: 2013Q1

REPORT INFORMATION
  Report Type: Spontaneous
  Country: US (occurrence: US)
  Receive Date: 20121220
  Receipt Date: 20130313
  Transmission Date: 20140127
  Serious: Yes (Hospitalization)
  Sender: FDA-Public Use
  Company Number: US-PFIZER INC-2012320481

PATIENT
  Age: 45 Year
  Sex: Female
  Weight: 49.89 kg

DRUGS (3)
  1. EFFEXOR XR [Suspect]
     Indication: ANXIETY
     Dosage: 150 MG, 1X/DAY
     Route: 048
     Dates: end: 201207
  2. EFFEXOR XR [Suspect]
     Indication: DEPRESSION
     Dosage: 225 MG, 1X/DAY
     Route: 048
     Dates: start: 201207, end: 2012
  3. EFFEXOR XR [Suspect]
     Dosage: 150 MG, 1X/DAY
     Route: 048
     Dates: start: 2012

REACTIONS (2)
  - Eosinophilic pneumonia [Unknown]
  - Malaise [Unknown]
